FAERS Safety Report 4456808-X (Version None)
Quarter: 2004Q3

REPORT INFORMATION
  Report Type: 
  Country: None (occurrence: None)
  Receive Date: 20040921
  Receipt Date: 20040913
  Transmission Date: 20050211
  Serious: Yes (Death)
  Sender: FDA-Public Use
  Company Number: 8861

PATIENT
  Age: 46 Year
  Sex: Female

DRUGS (3)
  1. METHOTREXATE [Suspect]
     Indication: BLADDER CANCER
     Dosage: NI
  2. CISPLATIN [Suspect]
     Indication: BLADDER CANCER
     Dosage: NI
  3. PIRARUBICIN [Suspect]
     Indication: BLADDER CANCER
     Dosage: NI

REACTIONS (2)
  - CONDITION AGGRAVATED [None]
  - HEPATITIS B [None]
